FAERS Safety Report 11967141 (Version 2)
Quarter: 2016Q1

REPORT INFORMATION
  Report Type: Spontaneous
  Country: US (occurrence: US)
  Receive Date: 20160127
  Receipt Date: 20160202
  Transmission Date: 20160526
  Serious: No
  Sender: FDA-Public Use
  Company Number: US-PFIZER INC-2016036604

PATIENT
  Age: 62 Year
  Sex: Male

DRUGS (1)
  1. SUTENT [Suspect]
     Active Substance: SUNITINIB MALATE
     Indication: NEOPLASM MALIGNANT
     Dosage: 50 MG, DAILY CYCLIC (28 DAYS ON/14 DAYS OFF)
     Dates: start: 20160120

REACTIONS (4)
  - Insomnia [Unknown]
  - Anxiety [Unknown]
  - Neoplasm malignant [Unknown]
  - Disease progression [Unknown]
